FAERS Safety Report 11151933 (Version 2)
Quarter: 2015Q4

REPORT INFORMATION
  Report Type: Spontaneous
  Country: GB (occurrence: GB)
  Receive Date: 20150601
  Receipt Date: 20151013
  Transmission Date: 20160304
  Serious: Yes (Death)
  Sender: FDA-Public Use
  Company Number: GB-INCYTE CORPORATION-2015IN002364

PATIENT
  Age: 61 Year
  Sex: Male

DRUGS (1)
  1. INC424 [Suspect]
     Active Substance: RUXOLITINIB
     Indication: MYELOFIBROSIS
     Dosage: 30 OT, UNK
     Route: 065

REACTIONS (1)
  - Acute myeloid leukaemia [Fatal]
